FAERS Safety Report 4732937-8 (Version None)
Quarter: 2005Q3

REPORT INFORMATION
  Report Type: 
  Country: None (occurrence: None)
  Receive Date: 20050803
  Receipt Date: 20050613
  Transmission Date: 20060218
  Serious: No
  Sender: FDA-Public Use
  Company Number: US-GLAXOSMITHKLINE-A0562413A

PATIENT
  Age: 46 Year
  Sex: Female

DRUGS (4)
  1. AVANDAMET [Suspect]
     Indication: DRUG USE FOR UNKNOWN INDICATION
     Route: 048
  2. INSULIN [Concomitant]
  3. AMARYL [Concomitant]
     Route: 065
  4. ZOCOR [Concomitant]

REACTIONS (1)
  - ADVERSE EVENT [None]
